FAERS Safety Report 4505648-1 (Version None)
Quarter: 2004Q4

REPORT INFORMATION
  Report Type: 
  Country: None (occurrence: None)
  Receive Date: 20041018
  Receipt Date: 20040714
  Transmission Date: 20050328
  Serious: No
  Sender: FDA-Public Use
  Company Number: 207844

PATIENT
  Age: 74 Year
  Sex: Male

DRUGS (4)
  1. XOLAIR [Suspect]
     Indication: ASTHMA
     Dates: start: 20040101
  2. PROTONIX [Concomitant]
  3. SINGULAIR [Concomitant]
  4. ADVAIR (FLUTICASONE PROPIONATE, SALMETEROL XINAFOATE) [Concomitant]

REACTIONS (2)
  - DIFFICULTY IN WALKING [None]
  - MUSCULAR WEAKNESS [None]
